FAERS Safety Report 10890344 (Version 1)
Quarter: 2015Q1

REPORT INFORMATION
  Report Type: Report from Study
  Country: JP (occurrence: JP)
  Receive Date: 20150305
  Receipt Date: 20150305
  Transmission Date: 20150721
  Serious: Yes (Other)
  Sender: FDA-Public Use
  Company Number: JP-009507513-2010SP005076

PATIENT
  Age: 68 Year
  Sex: Female
  Weight: 46 kg

DRUGS (5)
  1. REBETOL [Suspect]
     Active Substance: RIBAVIRIN
     Dosage: 400 MG, QD
     Route: 048
     Dates: start: 20100811, end: 20101220
  2. FERON [Suspect]
     Active Substance: INTERFERON BETA
     Dosage: 6 MILLION BILLION UNIT, Q3W
     Route: 041
     Dates: start: 20100123, end: 20101210
  3. EVISTA [Concomitant]
     Active Substance: RALOXIFENE HYDROCHLORIDE
     Indication: OSTEOPOROSIS POSTMENOPAUSAL
     Dosage: 60 MG, UNK
     Route: 048
     Dates: start: 20100115
  4. FERON [Suspect]
     Active Substance: INTERFERON BETA
     Indication: CHRONIC HEPATITIS C
     Dosage: 6 MILLION BILLION UNIT, QD
     Route: 041
     Dates: start: 20100115, end: 20100121
  5. REBETOL [Suspect]
     Active Substance: RIBAVIRIN
     Indication: CHRONIC HEPATITIS C
     Dosage: 600 MG, QD, DOSAGE TEST: 200 MG AND 400 MG
     Route: 048
     Dates: start: 20100115, end: 20100810

REACTIONS (5)
  - Insomnia [Recovered/Resolved]
  - White blood cell count decreased [Recovering/Resolving]
  - Insomnia [Unknown]
  - Pyrexia [Recovered/Resolved]
  - Cardiac failure congestive [Recovered/Resolved]

NARRATIVE: CASE EVENT DATE: 20100115
